FAERS Safety Report 6142052-7 (Version None)
Quarter: 2009Q2

REPORT INFORMATION
  Report Type: 
  Country: None (occurrence: None)
  Receive Date: 20090402
  Receipt Date: 20090320
  Transmission Date: 20091009
  Serious: Yes (Death, Other)
  Sender: FDA-Public Use
  Company Number: US-ELI_LILLY_AND_COMPANY-US200903006358

PATIENT
  Age: 76 Year
  Sex: Male

DRUGS (3)
  1. ZYPREXA [Suspect]
     Indication: FEELING OF RELAXATION
     Dosage: UNK, UNK
  2. SEROQUEL [Concomitant]
     Indication: FEELING OF RELAXATION
     Dates: start: 20070114
  3. DEPAKOTE [Concomitant]
     Indication: FEELING OF RELAXATION
     Dates: start: 20070114

REACTIONS (8)
  - DECUBITUS ULCER [None]
  - DEHYDRATION [None]
  - DRUG INTERACTION [None]
  - MEDICAL OBSERVATION [None]
  - OVERDOSE [None]
  - PNEUMONIA [None]
  - SEPSIS [None]
  - WEIGHT DECREASED [None]
